FAERS Safety Report 9103266 (Version 3)
Quarter: 2013Q2

REPORT INFORMATION
  Report Type: Spontaneous
  Country: US (occurrence: US)
  Receive Date: 20130219
  Receipt Date: 20130430
  Transmission Date: 20140414
  Serious: Yes (Other)
  Sender: FDA-Public Use
  Company Number: US-BAYER-2013-018452

PATIENT
  Age: 87 Year
  Sex: Male

DRUGS (6)
  1. NIFEDIPINE [Suspect]
  2. CALCIUM CHANNEL BLOCKERS [Concomitant]
  3. ACE INHIBITOR NOS [Concomitant]
  4. HYDROCHLOROTHIAZID [Concomitant]
     Dosage: 12.5
  5. NORVASC [Concomitant]
  6. CLONIDINE [Concomitant]

REACTIONS (5)
  - Hypertensive crisis [None]
  - Blood pressure systolic increased [None]
  - Headache [None]
  - Blood pressure systolic increased [None]
  - Incorrect dose administered [None]
